FAERS Safety Report 13718171 (Version 1)
Quarter: 2017Q3

REPORT INFORMATION
  Report Type: Spontaneous
  Country: JP (occurrence: JP)
  Receive Date: 20170705
  Receipt Date: 20170705
  Transmission Date: 20171127
  Serious: Yes (Hospitalization)
  Sender: FDA-Public Use
  Company Number: JP-ASTRAZENECA-2017SE68533

PATIENT

DRUGS (2)
  1. SYMBICORT [Suspect]
     Active Substance: BUDESONIDE\FORMOTEROL FUMARATE DIHYDRATE
     Dosage: 1 DOSE FORM, TWO TIMES A DAY
     Route: 055
  2. SULTANOL [Concomitant]
     Active Substance: ALBUTEROL SULFATE
     Dosage: DOSE UNKNOWN
     Route: 065

REACTIONS (2)
  - Injury [Unknown]
  - Treatment noncompliance [Unknown]
